FAERS Safety Report 25339260 (Version 1)
Quarter: 2025Q2

REPORT INFORMATION
  Report Type: Spontaneous
  Country: US (occurrence: US)
  Receive Date: 20250521
  Receipt Date: 20250521
  Transmission Date: 20250716
  Serious: Yes (Other)
  Sender: ALEMBIC
  Company Number: US-ALEMBIC PHARMACUETICALS LIMITED-2025SCAL000494

PATIENT

DRUGS (4)
  1. FLUOROURACIL [Suspect]
     Active Substance: FLUOROURACIL
     Indication: Squamous cell carcinoma
     Route: 065
  2. LEUCOVORIN CALCIUM [Suspect]
     Active Substance: LEUCOVORIN CALCIUM
     Indication: Squamous cell carcinoma
     Route: 065
  3. OXALIPLATIN [Suspect]
     Active Substance: OXALIPLATIN
     Indication: Squamous cell carcinoma
     Route: 065
  4. NIVOLUMAB [Suspect]
     Active Substance: NIVOLUMAB
     Indication: Squamous cell carcinoma
     Route: 065

REACTIONS (9)
  - Sepsis [Unknown]
  - Septic shock [Unknown]
  - Hepatic failure [Unknown]
  - Circulatory collapse [Unknown]
  - Escherichia bacteraemia [Unknown]
  - Pancytopenia [Unknown]
  - Thrombocytopenia [Not Recovered/Not Resolved]
  - Drug ineffective [Unknown]
  - Anaemia macrocytic [Unknown]
